FAERS Safety Report 6396606-3 (Version None)
Quarter: 2009Q4

REPORT INFORMATION
  Report Type: 
  Country: None (occurrence: None)
  Receive Date: 20091012
  Receipt Date: 20091002
  Transmission Date: 20100525
  Serious: Yes (Life-Threatening, Other)
  Sender: FDA-Public Use
  Company Number: GB-ASTRAZENECA-2009SE17667

PATIENT
  Age: 15 Year
  Sex: Female
  Weight: 63 kg

DRUGS (3)
  1. QUETIAPINE [Suspect]
     Indication: PSYCHOTIC DISORDER
     Route: 048
     Dates: start: 20090511, end: 20090703
  2. CITALOPRAM HYDROBROMIDE [Concomitant]
     Indication: DEPRESSION
     Route: 048
     Dates: start: 20080101, end: 20090601
  3. LORAZEPAM [Concomitant]
     Indication: AGITATION
     Route: 048
     Dates: start: 20090601

REACTIONS (1)
  - NEUTROPENIA [None]
